FAERS Safety Report 13527723 (Version 3)
Quarter: 2017Q2

REPORT INFORMATION
  Report Type: Spontaneous
  Country: US (occurrence: US)
  Receive Date: 20170509
  Receipt Date: 20170602
  Transmission Date: 20170830
  Serious: Yes (Hospitalization, Other)
  Sender: FDA-Public Use
  Company Number: US-LUNDBECK-DKLU2030341

PATIENT
  Age: 17 Year
  Sex: Female
  Weight: 53 kg

DRUGS (6)
  1. ZONEGRAN [Suspect]
     Active Substance: ZONISAMIDE
     Route: 048
  2. ZONEGRAN [Suspect]
     Active Substance: ZONISAMIDE
     Route: 048
  3. ZONEGRAN [Suspect]
     Active Substance: ZONISAMIDE
     Route: 048
     Dates: start: 20170505
  4. ZONEGRAN [Suspect]
     Active Substance: ZONISAMIDE
     Indication: SEIZURE
     Route: 048
     Dates: start: 20170427
  5. KEPPRA [Concomitant]
     Active Substance: LEVETIRACETAM
     Indication: SEIZURE
     Route: 048
  6. ONFI [Suspect]
     Active Substance: CLOBAZAM
     Indication: JUVENILE MYOCLONIC EPILEPSY
     Route: 048
     Dates: start: 20170222

REACTIONS (4)
  - Pilonidal cyst [Unknown]
  - Seizure [Unknown]
  - Headache [Unknown]
  - Generalised tonic-clonic seizure [Unknown]

NARRATIVE: CASE EVENT DATE: 20170427
